FAERS Safety Report 9235892 (Version 1)
Quarter: 2013Q1

REPORT INFORMATION
  Report Type: Spontaneous
  Country: CA (occurrence: None)
  Receive Date: 20130327
  Receipt Date: 20130327
  Transmission Date: 20140127
  Serious: Yes (Death)
  Sender: FDA-Public Use
  Company Number: 2013035157

PATIENT
  Age: 40 Year
  Sex: Male

DRUGS (1)
  1. RIASTAP [Suspect]
     Indication: AORTIC ANEURYSM REPAIR
     Route: 042
     Dates: start: 20130314, end: 20130314

REACTIONS (10)
  - Brain injury [None]
  - Venous occlusion [None]
  - Compartment syndrome [None]
  - Subclavian vein thrombosis [None]
  - Haemorrhage [None]
  - Haemodynamic instability [None]
  - Polyuria [None]
  - Cerebral infarction [None]
  - Intracranial pressure increased [None]
  - Brain herniation [None]
